FAERS Safety Report 17573354 (Version 1)
Quarter: 2020Q1

REPORT INFORMATION
  Report Type: Spontaneous
  Country: FR (occurrence: FR)
  Receive Date: 20200323
  Receipt Date: 20200323
  Transmission Date: 20200409
  Serious: Yes (Other)
  Sender: FDA-Public Use
  Company Number: FR-PFIZER INC-2020121865

PATIENT
  Age: 84 Year
  Sex: Female

DRUGS (8)
  1. PANTOPRAZOLE [Suspect]
     Active Substance: PANTOPRAZOLE
     Indication: GASTROOESOPHAGEAL REFLUX DISEASE
     Dosage: 20 MG, 1X/DAY (QD)
     Route: 048
  2. FUROSEMIDE. [Suspect]
     Active Substance: FUROSEMIDE
     Indication: HYPERTENSION
     Dosage: 20 MG, 1X/DAY (QD)
     Route: 048
  3. KARDEGIC [Suspect]
     Active Substance: ASPIRIN DL-LYSINE
     Indication: ISCHAEMIC STROKE
     Dosage: 75 MG, 1X/DAY (QD; ONE DOSAGE FORM))
     Route: 048
  4. MONTELUKAST SODIUM. [Suspect]
     Active Substance: MONTELUKAST SODIUM
     Indication: ASTHMA
     Dosage: 10 MG, 1X/DAY (QD)
     Route: 048
     Dates: end: 20200229
  5. SPIRIVA [Suspect]
     Active Substance: TIOTROPIUM BROMIDE MONOHYDRATE
     Indication: CHRONIC OBSTRUCTIVE PULMONARY DISEASE
     Dosage: 18 UG, 1X/DAY (QD)
     Route: 055
  6. COAPROVEL [Suspect]
     Active Substance: HYDROCHLOROTHIAZIDE\IRBESARTAN
     Indication: HYPERTENSION
     Dosage: UNK, 1X/DAY (150/12.5 MG)
     Route: 048
  7. LOXEN L P [Suspect]
     Active Substance: NICARDIPINE HYDROCHLORIDE
     Indication: HYPERTENSION
     Dosage: 100 MG, 1X/DAY (QD)  (TWO DOSAGE FORM)
     Route: 048
  8. DEPAKINE [VALPROIC ACID] [Suspect]
     Active Substance: VALPROIC ACID
     Dosage: 400 MG/ML, 1X/DAY (TWO DOSAGE FORM)
     Route: 048

REACTIONS (1)
  - Delirium [Recovered/Resolved]

NARRATIVE: CASE EVENT DATE: 201912
